FAERS Safety Report 17430175 (Version 1)
Quarter: 2020Q1

REPORT INFORMATION
  Report Type: Spontaneous
  Country: US (occurrence: US)
  Receive Date: 20200218
  Receipt Date: 20200218
  Transmission Date: 20200409
  Serious: No
  Sender: FDA-Public Use
  Company Number: US-PFIZER INC-2020066573

PATIENT
  Age: 46 Year

DRUGS (1)
  1. KETAMINE HCL [Suspect]
     Active Substance: KETAMINE HYDROCHLORIDE
     Indication: STATUS EPILEPTICUS
     Dosage: UNK

REACTIONS (3)
  - Product use in unapproved indication [Unknown]
  - Fluid retention [Unknown]
  - Off label use [Unknown]
